FAERS Safety Report 18744618 (Version 1)
Quarter: 2021Q1

REPORT INFORMATION
  Report Type: Spontaneous
  Country: CA (occurrence: CA)
  Receive Date: 20210115
  Receipt Date: 20210115
  Transmission Date: 20210419
  Serious: Yes (Life-Threatening)
  Sender: FDA-Public Use
  Company Number: CA-TEVA-2021-CA-1867247

PATIENT
  Age: 6 Year
  Sex: Female

DRUGS (10)
  1. PENTAMIDINE ISETHIONATE INJ 300MG/VIAL BP [Concomitant]
  2. CYCLOPHOSPHAMIDE. [Suspect]
     Active Substance: CYCLOPHOSPHAMIDE
     Indication: B PRECURSOR TYPE ACUTE LEUKAEMIA
     Route: 041
  3. KYMRIAH [Suspect]
     Active Substance: TISAGENLECLEUCEL
     Route: 042
  4. ATROPINE. [Concomitant]
     Active Substance: ATROPINE
  5. FUROSEMIDE. [Concomitant]
     Active Substance: FUROSEMIDE
  6. HEPARIN SODIUM. [Concomitant]
     Active Substance: HEPARIN SODIUM
  7. EPINEPHRINE. [Concomitant]
     Active Substance: EPINEPHRINE
  8. FLUDARABINE [Suspect]
     Active Substance: FLUDARABINE PHOSPHATE
     Indication: B PRECURSOR TYPE ACUTE LEUKAEMIA
     Route: 041
  9. ALLOPURINOL. [Concomitant]
     Active Substance: ALLOPURINOL
  10. DIMENHYDRINATE. [Concomitant]
     Active Substance: DIMENHYDRINATE

REACTIONS (1)
  - Febrile neutropenia [Recovered/Resolved]
